FAERS Safety Report 20695850 (Version 1)
Quarter: 2022Q2

REPORT INFORMATION
  Report Type: Spontaneous
  Country: CN (occurrence: CN)
  Receive Date: 20220411
  Receipt Date: 20220411
  Transmission Date: 20220721
  Serious: Yes (Other)
  Sender: FDA-Public Use
  Company Number: CN-PFIZER INC-202200511979

PATIENT
  Age: 13 Year
  Sex: Male

DRUGS (1)
  1. METHOTREXATE SODIUM [Suspect]
     Active Substance: METHOTREXATE SODIUM
     Dosage: 10 G, D1, CONTINUOUS INTRAVENOUS DRIP FOR 4.5H
     Route: 041
     Dates: start: 20190528, end: 20190528

REACTIONS (4)
  - Acute kidney injury [Recovering/Resolving]
  - Drug clearance decreased [Recovered/Resolved]
  - Gastrointestinal disorder [Recovering/Resolving]
  - Platelet count decreased [Recovered/Resolved]

NARRATIVE: CASE EVENT DATE: 20190528
